FAERS Safety Report 4972319-7 (Version None)
Quarter: 2006Q2

REPORT INFORMATION
  Report Type: 
  Country: None (occurrence: None)
  Receive Date: 20060413
  Receipt Date: 20060328
  Transmission Date: 20061013
  Serious: Yes (Life-Threatening, Hospitalization)
  Sender: FDA-Public Use
  Company Number: US-BOEHRINGER INGELHEIM PHARMACEUTICALS, INC.-2006-BP-03462BP

PATIENT
  Age: 82 Year
  Sex: Female
  Weight: 64.86 kg

DRUGS (3)
  1. MOBIC [Suspect]
     Indication: OSTEOARTHRITIS
     Route: 048
     Dates: start: 20030828, end: 20060301
  2. LISINOPRIL [Concomitant]
  3. INDOPAMIDE [Concomitant]

REACTIONS (3)
  - ABDOMINAL PAIN [None]
  - GASTRIC ULCER PERFORATION [None]
  - PNEUMOPERITONEUM [None]
